FAERS Safety Report 10861098 (Version 5)
Quarter: 2020Q3

REPORT INFORMATION
  Report Type: Report from Study
  Country: MX (occurrence: MX)
  Receive Date: 20150224
  Receipt Date: 20160627
  Transmission Date: 20201104
  Serious: Yes (Death, Life-Threatening, Hospitalization, Other)
  Sender: FDA-Public Use
  Company Number: MX-ACTELION-A-CH2013-92770

PATIENT
  Age: 53 Year
  Sex: Female
  Weight: 45 kg

DRUGS (16)
  1. SILDENAFIL. [Concomitant]
     Active Substance: SILDENAFIL
     Dosage: 50 MG, UNK
     Route: 048
     Dates: start: 2003, end: 20150223
  2. OMEPRAZOLE. [Concomitant]
     Active Substance: OMEPRAZOLE
     Dosage: UNK
     Dates: start: 2011
  3. LEVOTHYROXINE. [Concomitant]
     Active Substance: LEVOTHYROXINE
     Dosage: UNK
     Dates: start: 201410
  4. ADEPSIQUE [Concomitant]
     Dosage: UNK
     Dates: start: 20110406
  5. FLUTICASONE PROPIONATE\SALMETEROL XINAFOATE [Concomitant]
     Active Substance: FLUTICASONE PROPIONATE\SALMETEROL XINAFOATE
     Dosage: UNK
     Dates: start: 20110104
  6. MACITENTAN [Suspect]
     Active Substance: MACITENTAN
     Indication: PULMONARY ARTERIAL HYPERTENSION
     Dosage: 10 MG, QD
     Route: 048
     Dates: start: 20120131, end: 20150223
  7. MACITENTAN [Suspect]
     Active Substance: MACITENTAN
     Indication: PULMONARY ARTERIAL HYPERTENSION
     Dosage: 10 MG, QD
     Route: 048
     Dates: start: 20120131, end: 20150223
  8. SERETIDE [Concomitant]
     Active Substance: FLUTICASONE PROPIONATE\SALMETEROL XINAFOATE
     Dosage: UNK
     Dates: start: 20110104
  9. AMIODARONE [Concomitant]
     Active Substance: AMIODARONE
     Dosage: UNK
     Dates: start: 201410
  10. BUMETANIDE. [Concomitant]
     Active Substance: BUMETANIDE
     Dosage: UNK
     Dates: start: 20140831
  11. IPRATROPIUM BROMIDE. [Concomitant]
     Active Substance: IPRATROPIUM BROMIDE
     Dosage: UNK
     Dates: start: 20131103
  12. ACENOCOUMAROL [Concomitant]
     Active Substance: ACENOCOUMAROL
     Dosage: 1 MG, UNK
     Route: 048
     Dates: start: 2009, end: 20150223
  13. DIGOXIN. [Concomitant]
     Active Substance: DIGOXIN
     Dosage: UNK
     Dates: start: 20100410
  14. SPIRONOLACTONE. [Concomitant]
     Active Substance: SPIRONOLACTONE
     Dosage: 23 MG, UNK
     Route: 048
     Dates: start: 20130131, end: 20150223
  15. FUROSEMIDE. [Concomitant]
     Active Substance: FUROSEMIDE
     Dosage: UNK
     Dates: start: 20130101
  16. LORATADINE. [Concomitant]
     Active Substance: LORATADINE
     Dosage: UNK
     Dates: start: 20130706

REACTIONS (31)
  - Concomitant disease aggravated [Fatal]
  - Diarrhoea [Unknown]
  - Tachypnoea [Fatal]
  - Decreased appetite [Unknown]
  - Acute kidney injury [Unknown]
  - Packed red blood cell transfusion [Unknown]
  - Ascites [Fatal]
  - Dehydration [Recovered/Resolved]
  - Haemoglobin decreased [Recovered/Resolved]
  - Electrocardiogram ST segment depression [Fatal]
  - Cardiogenic shock [Recovered/Resolved]
  - Platelet count decreased [Unknown]
  - Dyspnoea [Fatal]
  - Abdominal pain [Recovered/Resolved]
  - Tachycardia [Fatal]
  - Chronic right ventricular failure [Fatal]
  - Oedema [Fatal]
  - Palpitations [Fatal]
  - Chest pain [Fatal]
  - Cholelithiasis [Recovered/Resolved]
  - Pneumonia [Recovered/Resolved]
  - Lower gastrointestinal haemorrhage [Recovered/Resolved]
  - Congestive hepatopathy [Fatal]
  - Disease progression [Fatal]
  - Syncope [Recovered/Resolved]
  - Abdominal distension [Unknown]
  - Pulmonary arterial hypertension [Fatal]
  - Hyperbilirubinaemia [Recovered/Resolved]
  - Loss of personal independence in daily activities [Fatal]
  - Cough [Recovered/Resolved]
  - Right ventricular hypertrophy [Fatal]

NARRATIVE: CASE EVENT DATE: 20120614
